FAERS Safety Report 8539724-3 (Version None)
Quarter: 2012Q3

REPORT INFORMATION
  Report Type: 
  Country: None (occurrence: None)
  Receive Date: 20120726
  Receipt Date: 20120328
  Transmission Date: 20120928
  Serious: No
  Sender: FDA-Public Use
  Company Number: US-ASTRAZENECA-2006UW15194

PATIENT
  Age: 66 Year
  Sex: Female

DRUGS (5)
  1. SEROQUEL [Suspect]
     Indication: BIPOLAR I DISORDER
     Route: 048
     Dates: start: 20040101
  2. SEROQUEL [Suspect]
     Dosage: GRADUALLY LOWERED FROM SEROQUEL 200 MG TO 50 MG
     Route: 048
  3. CRESTOR [Suspect]
     Route: 048
     Dates: start: 20120201
  4. PROZAC [Suspect]
     Route: 065
  5. NEFAZODONE HCL [Suspect]
     Route: 065

REACTIONS (5)
  - TENSION [None]
  - DIABETES MELLITUS [None]
  - BLOOD GLUCOSE DECREASED [None]
  - SOMNOLENCE [None]
  - CONSTIPATION [None]
